FAERS Safety Report 5745186-1 (Version None)
Quarter: 2008Q2

REPORT INFORMATION
  Report Type: 
  Country: None (occurrence: None)
  Receive Date: 20080521
  Receipt Date: 20080521
  Transmission Date: 20081010
  Serious: Yes (Hospitalization)
  Sender: FDA-Public Use
  Company Number: A0728909A

PATIENT
  Age: 51 Year
  Sex: Female
  Weight: 61.4 kg

DRUGS (4)
  1. ALLI [Suspect]
     Indication: WEIGHT LOSS DIET
     Route: 048
     Dates: start: 20070901, end: 20080517
  2. FOLIC ACID [Concomitant]
  3. ASCORBIC ACID [Concomitant]
  4. VITAMIN B COMPLEX CAP [Concomitant]

REACTIONS (11)
  - BREAST PAIN [None]
  - COLONIC POLYP [None]
  - CONSTIPATION [None]
  - DEFAECATION URGENCY [None]
  - DEHYDRATION [None]
  - DYSPEPSIA [None]
  - HAEMATOCHEZIA [None]
  - MUSCLE SPASMS [None]
  - RECTAL DISCHARGE [None]
  - RECTAL HAEMORRHAGE [None]
  - TIC [None]
